FAERS Safety Report 9394696 (Version 2)
Quarter: 2013Q3

REPORT INFORMATION
  Report Type: Report from Study
  Country: FR (occurrence: FR)
  Receive Date: 20130711
  Receipt Date: 20130717
  Transmission Date: 20140515
  Serious: Yes (Hospitalization, Other)
  Sender: FDA-Public Use
  Company Number: FR-MPIJNJ-2013-05157

PATIENT
  Sex: 0

DRUGS (15)
  1. VELCADE [Suspect]
     Indication: PLASMA CELL MYELOMA
     Dosage: UNK
     Route: 042
     Dates: start: 20130412
  2. DEXAMETHASONE [Suspect]
     Indication: PLASMA CELL MYELOMA
     Dosage: 20 MG, UNK
     Route: 048
     Dates: start: 20130412
  3. MORPHINE SULFATE [Suspect]
     Indication: PRODUCT USED FOR UNKNOWN INDICATION
     Dosage: UNK
     Route: 048
     Dates: start: 20130415, end: 20130422
  4. VOLTARENE                          /00372302/ [Concomitant]
     Indication: PRODUCT USED FOR UNKNOWN INDICATION
  5. PROFENID                           /00321701/ [Concomitant]
     Indication: PRODUCT USED FOR UNKNOWN INDICATION
  6. CERIS [Concomitant]
     Indication: PRODUCT USED FOR UNKNOWN INDICATION
     Dosage: 100 MG, UNK
  7. TAMSULOSINE HCL A [Concomitant]
     Indication: PRODUCT USED FOR UNKNOWN INDICATION
  8. PIASCLEDINE                        /00809501/ [Concomitant]
     Indication: PRODUCT USED FOR UNKNOWN INDICATION
     Dosage: 300 MG, UNK
  9. KARDEGIC                           /00002703/ [Concomitant]
  10. ATORVASTATIN [Concomitant]
  11. COAPROVEL [Concomitant]
  12. NOVOMIX                            /01475801/ [Concomitant]
  13. CELIPROLOL [Concomitant]
  14. NOVONORM [Concomitant]
  15. METFORMINE [Concomitant]

REACTIONS (2)
  - Subileus [Recovering/Resolving]
  - Peripheral sensorimotor neuropathy [Recovering/Resolving]
